FAERS Safety Report 4655920-X (Version None)
Quarter: 2005Q2

REPORT INFORMATION
  Report Type: 
  Country: None (occurrence: None)
  Receive Date: 20050505
  Receipt Date: 20050419
  Transmission Date: 20051028
  Serious: Yes (Hospitalization)
  Sender: FDA-Public Use
  Company Number: EWC050343043

PATIENT
  Age: 71 Year
  Sex: Male

DRUGS (2)
  1. GEMCITABINE HYDROCHLORIDE-IV (GEMCITABINE) [Suspect]
     Indication: ADENOCARCINOMA PANCREAS
     Dosage: 1400 MG
     Dates: start: 20040201
  2. PANCREX (PANCREATIN) [Concomitant]

REACTIONS (1)
  - PEMPHIGOID [None]
